FAERS Safety Report 8601784-9 (Version None)
Quarter: 2012Q3

REPORT INFORMATION
  Report Type: 
  Country: None (occurrence: None)
  Receive Date: 20120817
  Receipt Date: 20120809
  Transmission Date: 20120928
  Serious: Yes (Hospitalization)
  Sender: FDA-Public Use
  Company Number: GB-SANOFI-AVENTIS-2012SA054003

PATIENT
  Age: 49 Year
  Sex: Female

DRUGS (4)
  1. VITAMIN B-12 [Concomitant]
  2. PLAQUENIL [Suspect]
     Indication: POLYMYALGIA RHEUMATICA
     Route: 048
     Dates: start: 20120720, end: 20120725
  3. LEVOTHYROXINE SODIUM [Concomitant]
  4. DICLOFENAC [Concomitant]
     Dosage: DAILY DOSE: 50 MG

REACTIONS (11)
  - MALAISE [None]
  - DIZZINESS [None]
  - FEELING HOT [None]
  - PARAESTHESIA ORAL [None]
  - TREMOR [None]
  - ABDOMINAL PAIN UPPER [None]
  - HEADACHE [None]
  - NAUSEA [None]
  - PALPITATIONS [None]
  - PHARYNGEAL OEDEMA [None]
  - RESPIRATORY RATE INCREASED [None]
